FAERS Safety Report 6573792-3 (Version None)
Quarter: 2010Q1

REPORT INFORMATION
  Report Type: 
  Country: None (occurrence: None)
  Receive Date: 20100204
  Receipt Date: 20100204
  Transmission Date: 20100710
  Serious: Yes (Hospitalization)
  Sender: FDA-Public Use
  Company Number: None

PATIENT
  Sex: Female
  Weight: 51.65 kg

DRUGS (2)
  1. CYTARABINE [Suspect]
     Dosage: 37600 MG
  2. L-ASPARAGINASE [Suspect]
     Dosage: 19000 UNIT

REACTIONS (9)
  - CARDIAC OUTPUT DECREASED [None]
  - CEREBRAL FUNGAL INFECTION [None]
  - ESCHERICHIA SEPSIS [None]
  - FEBRILE NEUTROPENIA [None]
  - FUNGAL SKIN INFECTION [None]
  - HYPOTENSION [None]
  - LOWER RESPIRATORY TRACT INFECTION FUNGAL [None]
  - MULTI-ORGAN FAILURE [None]
  - SCEDOSPORIUM INFECTION [None]
